FAERS Safety Report 6955913-3 (Version None)
Quarter: 2010Q3

REPORT INFORMATION
  Report Type: 
  Country: None (occurrence: None)
  Receive Date: 20100826
  Receipt Date: 20100826
  Transmission Date: 20110219
  Serious: Yes (Life-Threatening, Hospitalization, Other)
  Sender: FDA-Public Use
  Company Number: None

PATIENT
  Age: 45 Year
  Sex: Female
  Weight: 56.6996 kg

DRUGS (1)
  1. CLINDAMYCIN [Suspect]
     Indication: TOOTH EXTRACTION
     Dosage: 1 4 TIMES PER DAY DENTAL
     Route: 004
     Dates: start: 20091207, end: 20091221

REACTIONS (6)
  - ASTHENIA [None]
  - CLOSTRIDIAL INFECTION [None]
  - DIARRHOEA [None]
  - HYPOTENSION [None]
  - IMMUNE SYSTEM DISORDER [None]
  - INFLUENZA [None]
